FAERS Safety Report 21022278 (Version 1)
Quarter: 2022Q2

REPORT INFORMATION
  Report Type: Spontaneous
  Country: US (occurrence: None)
  Receive Date: 20220628
  Receipt Date: 20220628
  Transmission Date: 20220721
  Serious: Yes (Hospitalization, Disabling, Other)
  Sender: FDA-Public Use
  Company Number: None

PATIENT
  Age: 20 Year
  Sex: Male
  Weight: 148.5 kg

DRUGS (10)
  1. FLUCONAZOLE [Suspect]
     Active Substance: FLUCONAZOLE
     Indication: Histoplasmosis
     Dosage: OTHER QUANTITY : 2 TABLET(S);?FREQUENCY : DAILY;?
     Route: 048
  2. ARIPIPRAZOLE [Suspect]
     Active Substance: ARIPIPRAZOLE
     Indication: Major depression
     Dosage: OTHER QUANTITY : 1 TABLET(S);?FREQUENCY : AT BEDTIME;?
     Route: 048
  3. Desvenlafaxine (1 50 mg tab at bedtime) [Concomitant]
  4. Symbicort (160-4.5 mcg 2x daily) [Concomitant]
  5. Rizatriptan (10 mg, PRN for Hemiplegic migraine) [Concomitant]
  6. Walker [Concomitant]
  7. VITAMINS [Concomitant]
     Active Substance: VITAMINS
  8. Vitamin D [Concomitant]
  9. METHYLATED [Concomitant]
  10. VITAMIN B12 [Concomitant]
     Active Substance: CYANOCOBALAMIN

REACTIONS (10)
  - Chromaturia [None]
  - Muscular weakness [None]
  - Monoplegia [None]
  - Paraesthesia [None]
  - Pain [None]
  - Chest pain [None]
  - Dyspnoea [None]
  - Blood creatine phosphokinase increased [None]
  - Drug interaction [None]
  - Gait disturbance [None]

NARRATIVE: CASE EVENT DATE: 20220611
